FAERS Safety Report 14633106 (Version 1)
Quarter: 2018Q1

REPORT INFORMATION
  Report Type: Spontaneous
  Country: US (occurrence: US)
  Receive Date: 20180313
  Receipt Date: 20180313
  Transmission Date: 20180509
  Serious: No
  Sender: FDA-Public Use
  Company Number: US-BAUSCH-BL-2017-010087

PATIENT
  Age: 83 Year
  Sex: Male
  Weight: 97.61 kg

DRUGS (2)
  1. LATANOPROST. [Concomitant]
     Active Substance: LATANOPROST
     Indication: GLAUCOMA
     Dosage: EVERY NIGHT
     Route: 047
  2. BACITRACIN ZINC AND POLYMYXIN B SULFATE [Suspect]
     Active Substance: BACITRACIN ZINC\POLYMYXIN B SULFATE
     Indication: ROUTINE HEALTH MAINTENANCE
     Dosage: APPLIED TO EYEBROWS AND EYELIDS AS NEEDED.
     Route: 061
     Dates: start: 20170223, end: 201704

REACTIONS (4)
  - Off label use [Unknown]
  - Incorrect route of drug administration [Unknown]
  - Accidental exposure to product [Unknown]
  - Vision blurred [Recovered/Resolved]

NARRATIVE: CASE EVENT DATE: 2017
